FAERS Safety Report 6791335-6 (Version None)
Quarter: 2010Q2

REPORT INFORMATION
  Report Type: 
  Country: None (occurrence: None)
  Receive Date: 20100624
  Receipt Date: 20100615
  Transmission Date: 20101027
  Serious: Yes (Hospitalization)
  Sender: FDA-Public Use
  Company Number: FR-ROCHE-577940

PATIENT
  Sex: Female

DRUGS (9)
  1. MYCOPHENOLATE MOFETIL [Suspect]
     Indication: IMMUNOSUPPRESSION
     Route: 048
     Dates: start: 20080331, end: 20080702
  2. VALGANCICLOVIR [Suspect]
     Indication: BONE MARROW TOXICITY
     Route: 065
     Dates: start: 20080430, end: 20080709
  3. SULFAMETHOXAZOLE AND TRIMETHOPRIM [Suspect]
     Indication: BONE MARROW TOXICITY
     Dosage: BACTRIM
     Route: 065
     Dates: start: 20080430, end: 20080704
  4. CP-690550 [Suspect]
     Route: 048
     Dates: start: 20080331, end: 20080702
  5. OMEPRAZOLE [Concomitant]
     Dates: start: 20080407
  6. SODIUM BICARBONATE [Concomitant]
  7. AMLODIPINE BESYLATE [Concomitant]
     Dates: start: 20080406
  8. ATENOLOL [Concomitant]
     Dates: start: 20080401
  9. PREDNISONE [Concomitant]
     Dates: start: 20080331

REACTIONS (6)
  - ANAEMIA [None]
  - BLOOD CREATININE INCREASED [None]
  - LEUKOPENIA [None]
  - LYMPHOCELE [None]
  - NEUTROPENIA [None]
  - REFUSAL OF TREATMENT BY PATIENT [None]
